FAERS Safety Report 6591934-0 (Version None)
Quarter: 2010Q1

REPORT INFORMATION
  Report Type: 
  Country: None (occurrence: None)
  Receive Date: 20100221
  Receipt Date: 20090819
  Transmission Date: 20100710
  Serious: No
  Sender: FDA-Public Use
  Company Number: US-ALLERGAN-0911473US

PATIENT
  Age: 57 Year
  Sex: Female

DRUGS (1)
  1. BOTOX [Suspect]
     Indication: HEADACHE
     Dosage: 95 UNITS, SINGLE
     Route: 030
     Dates: start: 20090805, end: 20090805

REACTIONS (1)
  - VISION BLURRED [None]
